FAERS Safety Report 4948764-2 (Version None)
Quarter: 2006Q1

REPORT INFORMATION
  Report Type: 
  Country: None (occurrence: None)
  Receive Date: 20060321
  Receipt Date: 20060309
  Transmission Date: 20060701
  Serious: Yes (Death, Life-Threatening, Hospitalization)
  Sender: FDA-Public Use
  Company Number: US-JNJFOC-20060204793

PATIENT
  Sex: Male

DRUGS (9)
  1. INFLIXIMAB [Suspect]
     Indication: RHEUMATOID ARTHRITIS
     Route: 042
  2. METHOTREXATE [Suspect]
     Indication: RHEUMATOID ARTHRITIS
     Route: 030
  3. METHOTREXATE [Suspect]
     Indication: CROHN'S DISEASE
     Route: 048
  4. DEFLAZACORT [Concomitant]
  5. FOLIC ACID [Concomitant]
  6. MELOXICAM [Concomitant]
  7. CALCIUM GLUCONATE [Concomitant]
  8. OMEPRAZOLE [Concomitant]
  9. METOCLOPRAMIDE HCL [Concomitant]

REACTIONS (5)
  - ENTEROCUTANEOUS FISTULA [None]
  - GASTRITIS [None]
  - OESOPHAGITIS [None]
  - PERITONEAL TUBERCULOSIS [None]
  - SEPTIC SHOCK [None]
